FAERS Safety Report 18620283 (Version 1)
Quarter: 2020Q4

REPORT INFORMATION
  Report Type: Spontaneous
  Country: CN (occurrence: CN)
  Receive Date: 20201216
  Receipt Date: 20201216
  Transmission Date: 20210114
  Serious: Yes (Life-Threatening)
  Sender: FDA-Public Use
  Company Number: CN-ROCHE-2732535

PATIENT
  Age: 77 Year
  Sex: Female
  Weight: 48 kg

DRUGS (10)
  1. PREDNISONE ACETATE [Concomitant]
     Active Substance: PREDNISONE ACETATE
     Indication: IMMUNOSUPPRESSION
     Route: 048
     Dates: start: 20201113
  2. MABTHERA [Suspect]
     Active Substance: RITUXIMAB
     Indication: DIFFUSE LARGE B-CELL LYMPHOMA
     Route: 041
     Dates: start: 20201111
  3. GLUCOSE [Concomitant]
     Active Substance: DEXTROSE
     Dosage: SOLVENT FOR EPIRUBICIN HYDROCHLORIDE FOR INJECTION
     Route: 041
     Dates: start: 20201112
  4. VINCRISTINE SULFATE. [Suspect]
     Active Substance: VINCRISTINE SULFATE
     Indication: DIFFUSE LARGE B-CELL LYMPHOMA
     Route: 041
     Dates: start: 20201112
  5. CYCLOPHOSPHAMIDE. [Suspect]
     Active Substance: CYCLOPHOSPHAMIDE
     Indication: DIFFUSE LARGE B-CELL LYMPHOMA
     Route: 041
     Dates: start: 20201112
  6. SODIUM CHLORIDE. [Concomitant]
     Active Substance: SODIUM CHLORIDE
     Dosage: SOLVENT FOR CYCLOPHOSPHAMIDE FOR INJECTION AND VINCRISTINE SULFATE FOR INJECTION
     Route: 041
     Dates: start: 20201112
  7. MABTHERA [Suspect]
     Active Substance: RITUXIMAB
     Route: 041
     Dates: start: 20201111
  8. EPIRUBICIN HYDROCHLORIDE. [Suspect]
     Active Substance: EPIRUBICIN HYDROCHLORIDE
     Indication: DIFFUSE LARGE B-CELL LYMPHOMA
     Route: 041
     Dates: start: 20201112
  9. GLUCOSE [Concomitant]
     Active Substance: DEXTROSE
     Dosage: LOT NO.20030201D3,SOLVENT FOR RITUXIMAB 0.1G
     Route: 041
     Dates: start: 20201111
  10. GLUCOSE [Concomitant]
     Active Substance: DEXTROSE
     Dosage: LOT NO.20082003D1,SOLVENT FOR RITUXIMAB 0.4G
     Route: 041
     Dates: start: 20201111

REACTIONS (5)
  - Diarrhoea [Recovering/Resolving]
  - Decreased appetite [Unknown]
  - Myelosuppression [Recovering/Resolving]
  - Nausea [Recovering/Resolving]
  - Vomiting [Recovering/Resolving]

NARRATIVE: CASE EVENT DATE: 20201119
